FAERS Safety Report 9136255 (Version 2)
Quarter: 2013Q3

REPORT INFORMATION
  Report Type: Spontaneous
  Country: FR (occurrence: FR)
  Receive Date: 20130304
  Receipt Date: 20130802
  Transmission Date: 20140515
  Serious: Yes (Life-Threatening, Hospitalization)
  Sender: FDA-Public Use
  Company Number: FR-GLAXOSMITHKLINE-B0870280A

PATIENT
  Age: 61 Year
  Sex: Female

DRUGS (7)
  1. RANIPLEX [Suspect]
     Indication: PROPHYLAXIS
     Dosage: 50MG SINGLE DOSE
     Route: 042
     Dates: start: 20130204
  2. AVASTIN (BEVACIZUMAB) [Suspect]
     Indication: BREAST CANCER METASTATIC
     Dosage: 690MG CYCLIC
     Route: 042
     Dates: start: 20130204, end: 20130204
  3. TAXOL [Suspect]
     Indication: BREAST CANCER METASTATIC
     Dosage: 156MG SINGLE DOSE
     Route: 042
     Dates: start: 20130204, end: 20130204
  4. INEXIUM [Suspect]
     Indication: PRODUCT USED FOR UNKNOWN INDICATION
     Route: 048
  5. COZAAR [Concomitant]
  6. DETENSIEL [Concomitant]
  7. TAHOR [Concomitant]

REACTIONS (4)
  - Epistaxis [Not Recovered/Not Resolved]
  - Ecchymosis [Not Recovered/Not Resolved]
  - Petechiae [Not Recovered/Not Resolved]
  - Thrombocytopenia [Not Recovered/Not Resolved]
